FAERS Safety Report 24590465 (Version 4)
Quarter: 2025Q3

REPORT INFORMATION
  Report Type: Spontaneous
  Country: US (occurrence: US)
  Receive Date: 20241107
  Receipt Date: 20250919
  Transmission Date: 20251020
  Serious: Yes (Hospitalization, Other)
  Sender: BRISTOL-MYERS SQUIBB COMPANY
  Company Number: US-BRISTOL-MYERS SQUIBB COMPANY-2024-171601

PATIENT
  Age: 71 Year
  Sex: Female
  Weight: 103.4 kg

DRUGS (8)
  1. ELIQUIS [Suspect]
     Active Substance: APIXABAN
     Indication: Pulmonary embolism
  2. ELIQUIS [Suspect]
     Active Substance: APIXABAN
  3. ELIQUIS [Suspect]
     Active Substance: APIXABAN
  4. IBRANCE [Suspect]
     Active Substance: PALBOCICLIB
     Indication: Breast cancer metastatic
     Dosage: TAKE 1 CAPSULE (125 MG TOTAL) BY MOUTH DAILY. ON: 21 DAYS, OFF: 7 DAYS -ORAL
     Dates: start: 20201209
  5. IBRANCE [Suspect]
     Active Substance: PALBOCICLIB
     Dosage: TAKE 1 CAPSULE (125 MG TOTAL) BY MOUTH DAILY. ON: 21 DAYS, OFF: 7 DAYS- ORAL
     Dates: start: 20221021
  6. IBRANCE [Suspect]
     Active Substance: PALBOCICLIB
     Dosage: TAKE 1 TABLET 21 DAYS ON 7 DAYS OFF
     Dates: start: 20201209
  7. FEMARA [Suspect]
     Active Substance: LETROZOLE
     Indication: Product used for unknown indication
     Dates: start: 20201209
  8. XGEVA [Suspect]
     Active Substance: DENOSUMAB
     Indication: Product used for unknown indication
     Dates: start: 20201215

REACTIONS (12)
  - Anaemia [Unknown]
  - Duodenal ulcer [Unknown]
  - Gastrointestinal haemorrhage [Unknown]
  - Haematocrit decreased [Unknown]
  - White blood cell count decreased [Unknown]
  - Platelet count decreased [Unknown]
  - Treatment noncompliance [Unknown]
  - Cough [Unknown]
  - Rotator cuff syndrome [Unknown]
  - Off label use [Unknown]
  - Tooth fracture [Unknown]
  - Mental impairment [Unknown]

NARRATIVE: CASE EVENT DATE: 20210801
